FAERS Safety Report 12829011 (Version 2)
Quarter: 2016Q4

REPORT INFORMATION
  Report Type: Spontaneous
  Country: FR (occurrence: FR)
  Receive Date: 20161007
  Receipt Date: 20161102
  Transmission Date: 20170207
  Serious: Yes (Other)
  Sender: FDA-Public Use
  Company Number: FR-SA-2016SA157423

PATIENT
  Age: 32 Year
  Sex: Female

DRUGS (1)
  1. LEMTRADA [Suspect]
     Active Substance: ALEMTUZUMAB
     Indication: MULTIPLE SCLEROSIS
     Dosage: START DATE: UNKNOWN DATE AND YEAR IN MARCH
     Route: 042
     Dates: start: 20160301

REACTIONS (4)
  - Multiple sclerosis relapse [Recovered/Resolved]
  - Eye pain [Unknown]
  - Opportunistic infection [Unknown]
  - Optic neuritis [Unknown]

NARRATIVE: CASE EVENT DATE: 20160815
